FAERS Safety Report 7212317-6 (Version None)
Quarter: 2010Q4

REPORT INFORMATION
  Report Type: 
  Country: None (occurrence: None)
  Receive Date: 20101229
  Receipt Date: 20101214
  Transmission Date: 20110411
  Serious: Yes (Other)
  Sender: FDA-Public Use
  Company Number: 012280

PATIENT
  Age: 46 Year
  Sex: Female

DRUGS (6)
  1. BUSULFEX [Suspect]
     Indication: CHEMOTHERAPY
  2. ETOPOSIDE [Concomitant]
  3. CYCLOPHOSPHAMIDE [Concomitant]
  4. PREDNISONE TAB [Concomitant]
  5. . [Concomitant]
  6. . [Concomitant]

REACTIONS (2)
  - PERIPHERAL T-CELL LYMPHOMA UNSPECIFIED [None]
  - RECURRENT CANCER [None]
